FAERS Safety Report 6411521-4 (Version None)
Quarter: 2009Q4

REPORT INFORMATION
  Report Type: 
  Country: None (occurrence: None)
  Receive Date: 20091023
  Receipt Date: 20091012
  Transmission Date: 20100525
  Serious: Yes (Other)
  Sender: FDA-Public Use
  Company Number: AU-JNJFOC-20090702550

PATIENT
  Sex: Female

DRUGS (3)
  1. CAELYX [Suspect]
     Dosage: CYCLE 4
     Route: 042
  2. CAELYX [Suspect]
     Indication: OVARIAN CANCER
     Dosage: CYCLES 1-3
     Route: 042
  3. CARBOPLATIN [Concomitant]
     Route: 065

REACTIONS (2)
  - INTERSTITIAL LUNG DISEASE [None]
  - PNEUMOCYSTIS JIROVECI PNEUMONIA [None]
